FAERS Safety Report 18762440 (Version 1)
Quarter: 2021Q1

REPORT INFORMATION
  Report Type: Spontaneous
  Country: CN (occurrence: CN)
  Receive Date: 20210120
  Receipt Date: 20210120
  Transmission Date: 20210419
  Serious: Yes (Death, Other)
  Sender: FDA-Public Use
  Company Number: CN-ASTRAZENECA-2021A006462

PATIENT
  Age: 58 Year
  Sex: Male

DRUGS (1)
  1. IMFINZI [Suspect]
     Active Substance: DURVALUMAB
     Indication: SMALL CELL LUNG CANCER
     Dosage: ONCE/ 21 DAYS, 1000MG
     Route: 042

REACTIONS (2)
  - Immune-mediated pneumonitis [Unknown]
  - Death [Fatal]

NARRATIVE: CASE EVENT DATE: 20210109
